FAERS Safety Report 23102340 (Version 2)
Quarter: 2023Q4

REPORT INFORMATION
  Report Type: Report from Study
  Country: BG (occurrence: BG)
  Receive Date: 20231025
  Receipt Date: 20231129
  Transmission Date: 20240110
  Serious: Yes (Other)
  Sender: FDA-Public Use
  Company Number: BG-BoehringerIngelheim-2023-BI-267623

PATIENT

DRUGS (2)
  1. SYNJARDY [Suspect]
     Active Substance: EMPAGLIFLOZIN\METFORMIN HYDROCHLORIDE
     Indication: Type 2 diabetes mellitus
     Dosage: 5MG/1000  MG(METFORMIN  1000  MG  AND  EMPAGLIPHLOZIN  5  MG)
  2. METFORMIN [Concomitant]
     Active Substance: METFORMIN HYDROCHLORIDE
     Indication: Type 2 diabetes mellitus

REACTIONS (7)
  - C-reactive protein increased [Unknown]
  - Insulin resistance [Unknown]
  - Glycosylated haemoglobin increased [Unknown]
  - Blood glucose increased [Unknown]
  - Nervous system disorder [Unknown]
  - Autonomic nervous system imbalance [Unknown]
  - Laboratory test abnormal [Unknown]
